FAERS Safety Report 4834159-9 (Version None)
Quarter: 2005Q4

REPORT INFORMATION
  Report Type: 
  Country: None (occurrence: None)
  Receive Date: 20051122
  Receipt Date: 20051031
  Transmission Date: 20060501
  Serious: Yes (Other)
  Sender: FDA-Public Use
  Company Number: US-GLAXOSMITHKLINE-A0582970A

PATIENT
  Age: 43 Year
  Sex: Female

DRUGS (1)
  1. TUMS [Suspect]
     Indication: CALCIUM DEFICIENCY
     Route: 048
     Dates: end: 20010828

REACTIONS (4)
  - DRUG INEFFECTIVE [None]
  - FRACTURE [None]
  - OSTEOPOROSIS [None]
  - PAIN [None]
